FAERS Safety Report 6384457-5 (Version None)
Quarter: 2009Q4

REPORT INFORMATION
  Report Type: 
  Country: None (occurrence: None)
  Receive Date: 20091001
  Receipt Date: 20090929
  Transmission Date: 20100525
  Serious: Yes (Other)
  Sender: FDA-Public Use
  Company Number: IN-ROXANE LABORATORIES, INC.-2009-RO-01011RO

PATIENT
  Age: 35 Year
  Sex: Female

DRUGS (3)
  1. FLUCONAZOLE [Suspect]
     Indication: VULVOVAGINAL CANDIDIASIS
  2. ANTIHISTAMINE [Concomitant]
     Indication: DRUG ERUPTION
  3. CORTICOSTEROIDS [Concomitant]
     Indication: DRUG ERUPTION
     Route: 061

REACTIONS (1)
  - DRUG ERUPTION [None]
